FAERS Safety Report 9285889 (Version 1)
Quarter: 2013Q2

REPORT INFORMATION
  Report Type: Spontaneous
  Country: US (occurrence: US)
  Receive Date: 20130513
  Receipt Date: 20130513
  Transmission Date: 20140414
  Serious: Yes (Hospitalization)
  Sender: FDA-Public Use
  Company Number: US-BAYER-2013-057222

PATIENT
  Age: 31 Year
  Sex: Female
  Weight: 83.9 kg

DRUGS (7)
  1. GIANVI [Suspect]
     Dosage: UNK
     Dates: start: 20100726, end: 20101206
  2. YAZ [Suspect]
     Indication: CONTRACEPTION
  3. PREDNISONE [Concomitant]
     Dosage: 20 MG, UNK
     Route: 048
     Dates: start: 20101004
  4. PROAIR HFA [Concomitant]
     Dosage: 8.5 GM/2 PUFFS AS NEEDED
     Route: 045
     Dates: start: 20101004
  5. CLARITHROMYCIN [Concomitant]
     Dosage: 500 MG, UNK
     Route: 048
     Dates: start: 20101004
  6. SYMBICORT [Concomitant]
     Dosage: 2 PUFF(S), TWICE DAILY
     Route: 045
     Dates: start: 20101004
  7. SERTRALINE [Concomitant]
     Dosage: 100 MG, UNK
     Route: 048
     Dates: start: 20101206

REACTIONS (1)
  - Pulmonary embolism [Recovered/Resolved]
